FAERS Safety Report 9197634 (Version 1)
Quarter: 2013Q1

REPORT INFORMATION
  Report Type: Spontaneous
  Country: GB (occurrence: GB)
  Receive Date: 20130328
  Receipt Date: 20130328
  Transmission Date: 20140127
  Serious: Yes (Other)
  Sender: FDA-Public Use
  Company Number: GB-ABBOTT-13X-167-1069205-00

PATIENT
  Sex: Male

DRUGS (1)
  1. EPILIM [Suspect]
     Indication: PRODUCT USED FOR UNKNOWN INDICATION
     Dates: start: 1998, end: 201206

REACTIONS (9)
  - Balance disorder [Recovered/Resolved]
  - Toxicity to various agents [Unknown]
  - Fatigue [Unknown]
  - Mood altered [Unknown]
  - Sleep disorder [Unknown]
  - Lethargy [Unknown]
  - Petit mal epilepsy [Recovered/Resolved]
  - Weight increased [Recovered/Resolved]
  - Tremor [Recovered/Resolved]
